FAERS Safety Report 24055456 (Version 1)
Quarter: 2024Q3

REPORT INFORMATION
  Report Type: Spontaneous
  Country: US (occurrence: None)
  Receive Date: 20240703
  Receipt Date: 20240703
  Transmission Date: 20241016
  Serious: Yes (Disabling, Other)
  Sender: Public
  Company Number: None

PATIENT
  Age: 56 Year
  Sex: Female
  Weight: 59.85 kg

DRUGS (11)
  1. NADOLOL [Suspect]
     Active Substance: NADOLOL
     Indication: Essential tremor
     Dosage: OTHER QUANTITY : 1 TABLET(S);?FREQUENCY : DAILY;?
     Route: 048
     Dates: start: 20240630, end: 20240701
  2. SEROQUEL [Concomitant]
     Active Substance: QUETIAPINE FUMARATE
  3. BABY ASPIRIN 81MG [Concomitant]
  4. ATORVASTATIN [Concomitant]
     Active Substance: ATORVASTATIN
  5. CLOPIDOGREL [Concomitant]
     Active Substance: CLOPIDOGREL BISULFATE
  6. VITAMIN D3 [Concomitant]
     Active Substance: CHOLECALCIFEROL
  7. MONTELUKAST [Concomitant]
     Active Substance: MONTELUKAST SODIUM
  8. COENZYME Q10 [Concomitant]
     Active Substance: DIETARY SUPPLEMENT\UBIDECARENONE
  9. SERTRALINE [Concomitant]
     Active Substance: SERTRALINE HYDROCHLORIDE
  10. METHYLCOBALAMIN [Concomitant]
     Active Substance: METHYLCOBALAMIN
  11. TYLENOL [Concomitant]
     Active Substance: ACETAMINOPHEN

REACTIONS (6)
  - Dizziness [None]
  - Syncope [None]
  - Dyspnoea [None]
  - Discomfort [None]
  - Fatigue [None]
  - Dizziness exertional [None]

NARRATIVE: CASE EVENT DATE: 20240630
